FAERS Safety Report 15009998 (Version 1)
Quarter: 2018Q2

REPORT INFORMATION
  Report Type: Spontaneous
  Country: US (occurrence: US)
  Receive Date: 20180614
  Receipt Date: 20180614
  Transmission Date: 20180711
  Serious: No
  Sender: FDA-Public Use
  Company Number: US-PFIZER INC-2018237441

PATIENT
  Age: 68 Year
  Sex: Female

DRUGS (3)
  1. ASPIRIN. [Concomitant]
     Active Substance: ASPIRIN
     Indication: FIBROMYALGIA
     Dosage: 1000 MG (TWO TABLETS), AS NEEDED
     Route: 048
  2. LYRICA [Suspect]
     Active Substance: PREGABALIN
     Indication: FIBROMYALGIA
     Dosage: UNK
     Dates: start: 2016, end: 201608
  3. ASPIRIN. [Concomitant]
     Active Substance: ASPIRIN
     Indication: ARTHROPATHY

REACTIONS (4)
  - Skin disorder [Unknown]
  - Loss of personal independence in daily activities [Not Recovered/Not Resolved]
  - Weight decreased [Unknown]
  - Urinary incontinence [Not Recovered/Not Resolved]

NARRATIVE: CASE EVENT DATE: 201608
